FAERS Safety Report 14258861 (Version 1)
Quarter: 2017Q4

REPORT INFORMATION
  Report Type: Spontaneous
  Country: US (occurrence: US)
  Receive Date: 20171207
  Receipt Date: 20171207
  Transmission Date: 20180321
  Serious: No
  Sender: FDA-Public Use
  Company Number: US-009507513-1711USA013356

PATIENT
  Age: 51 Year
  Sex: Female
  Weight: 115.19 kg

DRUGS (1)
  1. NEXPLANON [Suspect]
     Active Substance: ETONOGESTREL
     Dosage: UNK
     Route: 059
     Dates: start: 2014

REACTIONS (4)
  - Menstruation normal [Unknown]
  - Menometrorrhagia [Unknown]
  - Weight increased [Unknown]
  - Complication associated with device [Unknown]

NARRATIVE: CASE EVENT DATE: 201707
